FAERS Safety Report 15172241 (Version 1)
Quarter: 2018Q3

REPORT INFORMATION
  Report Type: Spontaneous
  Country: US (occurrence: US)
  Receive Date: 20180720
  Receipt Date: 20180720
  Transmission Date: 20181010
  Serious: Yes (Other)
  Sender: FDA-Public Use
  Company Number: US-REGENERON PHARMACEUTICALS, INC.-2018-30212

PATIENT

DRUGS (4)
  1. PREDNISONE. [Concomitant]
     Active Substance: PREDNISONE
     Indication: PRODUCT USED FOR UNKNOWN INDICATION
     Dosage: UNK
  2. ATROPINE. [Concomitant]
     Active Substance: ATROPINE
     Indication: PRODUCT USED FOR UNKNOWN INDICATION
     Dosage: UNK
  3. EYLEA [Suspect]
     Active Substance: AFLIBERCEPT
     Indication: NEOVASCULAR AGE-RELATED MACULAR DEGENERATION
     Dosage: UNK
     Route: 031
     Dates: start: 20170414
  4. EYLEA [Suspect]
     Active Substance: AFLIBERCEPT
     Dosage: UNK, BOTH EYES
     Route: 031
     Dates: start: 20180706, end: 20180706

REACTIONS (3)
  - Visual impairment [Recovering/Resolving]
  - Eye pain [Recovering/Resolving]
  - Eye infection bacterial [Recovering/Resolving]

NARRATIVE: CASE EVENT DATE: 20180706
